FAERS Safety Report 9188591 (Version 1)
Quarter: 2013Q1

REPORT INFORMATION
  Report Type: Spontaneous
  Country: US (occurrence: US)
  Receive Date: 20130325
  Receipt Date: 20130325
  Transmission Date: 20140127
  Serious: Yes (Death)
  Sender: FDA-Public Use
  Company Number: US-ASTRAZENECA-2013SE19033

PATIENT
  Sex: Female

DRUGS (1)
  1. PRILOSEC [Suspect]
     Route: 048

REACTIONS (1)
  - Death [Fatal]
